FAERS Safety Report 6526359-7 (Version None)
Quarter: 2009Q4

REPORT INFORMATION
  Report Type: 
  Country: None (occurrence: None)
  Receive Date: 20091228
  Receipt Date: 20091219
  Transmission Date: 20100525
  Serious: Yes (Hospitalization)
  Sender: FDA-Public Use
  Company Number: 2009SP042619

PATIENT
  Age: 44 Year
  Sex: Male

DRUGS (2)
  1. PEG-INTRON [Suspect]
     Indication: HEPATITIS C
     Dosage: SC
     Route: 058
     Dates: start: 20091214
  2. LASIX [Concomitant]

REACTIONS (8)
  - COUGH [None]
  - DRY MOUTH [None]
  - DYSPNOEA [None]
  - FEELING COLD [None]
  - GASTRIC DISORDER [None]
  - OEDEMA PERIPHERAL [None]
  - THIRST [None]
  - VOMITING [None]
